FAERS Safety Report 8121269-6 (Version None)
Quarter: 2012Q1

REPORT INFORMATION
  Report Type: 
  Country: None (occurrence: None)
  Receive Date: 20120206
  Receipt Date: 20120201
  Transmission Date: 20120608
  Serious: Yes (Hospitalization, Disabling, Other)
  Sender: FDA-Public Use
  Company Number: 2009SP036873

PATIENT
  Age: 47 Year
  Sex: Female
  Weight: 68.0396 kg

DRUGS (10)
  1. IBUPROFEN [Concomitant]
  2. LISINOPRIL [Concomitant]
  3. ZITHROMAX [Concomitant]
  4. ACIPHEX [Concomitant]
  5. ANCEF [Concomitant]
  6. NUVARING [Suspect]
     Indication: OVARIAN CYST
     Dates: start: 20070401, end: 20071014
  7. NUVARING [Suspect]
     Indication: MENORRHAGIA
     Dates: start: 20070401, end: 20071014
  8. NUVARING [Suspect]
     Indication: MENSTRUATION IRREGULAR
     Dates: start: 20070401, end: 20071014
  9. PHENYLEPHRINE [Concomitant]
  10. HYDROCODONE [Concomitant]

REACTIONS (50)
  - IRON DEFICIENCY ANAEMIA [None]
  - HAEMORRHAGE [None]
  - PHARYNGITIS [None]
  - COUGH [None]
  - LETHARGY [None]
  - CEREBROVASCULAR ACCIDENT [None]
  - DEEP VEIN THROMBOSIS [None]
  - COGNITIVE DISORDER [None]
  - UPPER RESPIRATORY TRACT INFECTION [None]
  - DIZZINESS [None]
  - MEMORY IMPAIRMENT [None]
  - HYPERTENSION [None]
  - MENORRHAGIA [None]
  - BLOOD GLUCOSE INCREASED [None]
  - HAEMORRHAGIC STROKE [None]
  - COMA [None]
  - TRANSVERSE SINUS THROMBOSIS [None]
  - CERVICAL DYSPLASIA [None]
  - SINUSITIS [None]
  - IMPAIRED DRIVING ABILITY [None]
  - TEARFULNESS [None]
  - DEPRESSION [None]
  - BRONCHITIS [None]
  - PROTEIN S DEFICIENCY [None]
  - SUPERIOR SAGITTAL SINUS THROMBOSIS [None]
  - SYNCOPE [None]
  - UTERINE POLYP [None]
  - VOMITING [None]
  - INAPPROPRIATE SCHEDULE OF DRUG ADMINISTRATION [None]
  - HYPERCOAGULATION [None]
  - TINNITUS [None]
  - HEMIANOPIA [None]
  - VERTIGO [None]
  - UTERINE LEIOMYOMA [None]
  - RESPIRATORY FAILURE [None]
  - VENA CAVA THROMBOSIS [None]
  - VISUAL FIELD DEFECT [None]
  - HAEMANGIOMA OF LIVER [None]
  - COAGULOPATHY [None]
  - ANEURYSM [None]
  - RHINITIS ALLERGIC [None]
  - HEADACHE [None]
  - BLISTER [None]
  - DEHYDRATION [None]
  - OXYGEN SATURATION DECREASED [None]
  - MOBILITY DECREASED [None]
  - GAIT DISTURBANCE [None]
  - LEUKOCYTOSIS [None]
  - EAR PAIN [None]
  - RENAL CELL CARCINOMA [None]
